FAERS Safety Report 23803139 (Version 1)
Quarter: 2024Q2

REPORT INFORMATION
  Report Type: Spontaneous
  Country: US (occurrence: None)
  Receive Date: 20240430
  Receipt Date: 20240430
  Transmission Date: 20240716
  Serious: Yes (Hospitalization)
  Sender: FDA-Public Use
  Company Number: None

PATIENT
  Age: 67 Year
  Sex: Male
  Weight: 97 kg

DRUGS (1)
  1. APIXABAN [Suspect]
     Active Substance: APIXABAN
     Dosage: FREQUENCY : TWICE A DAY;?
     Route: 048
     Dates: start: 20221116

REACTIONS (5)
  - Haematuria [None]
  - Dialysis [None]
  - Dyspnoea [None]
  - Hypervolaemia [None]
  - Calculus bladder [None]

NARRATIVE: CASE EVENT DATE: 20240330
